FAERS Safety Report 4364927-1 (Version None)
Quarter: 2004Q2

REPORT INFORMATION
  Report Type: 
  Country: None (occurrence: None)
  Receive Date: 20040521
  Receipt Date: 20040510
  Transmission Date: 20050107
  Serious: Yes (Hospitalization)
  Sender: FDA-Public Use
  Company Number: A03200401152

PATIENT
  Age: 54 Year
  Sex: Female
  Weight: 50.8029 kg

DRUGS (4)
  1. ELOXATIN [Suspect]
     Indication: COLON CANCER METASTATIC
     Dosage: 127 MG Q2W INTRAVENOUS NOS
     Route: 042
     Dates: start: 20040412, end: 20040412
  2. ELOXATIN [Suspect]
     Indication: METASTASES TO LIVER
     Dosage: 127 MG Q2W INTRAVENOUS NOS
     Route: 042
     Dates: start: 20040412, end: 20040412
  3. POTASSIUM [Concomitant]
  4. PROCHLORPERAZINE EDISYLATE [Concomitant]

REACTIONS (11)
  - BRONCHOSPASM [None]
  - CARDIAC MURMUR [None]
  - DRUG HYPERSENSITIVITY [None]
  - FEELING ABNORMAL [None]
  - HEART RATE IRREGULAR [None]
  - HYPERTENSION [None]
  - LARYNGOSPASM [None]
  - RESPIRATORY DISTRESS [None]
  - SYNCOPE [None]
  - TACHYCARDIA [None]
  - WHEEZING [None]
